FAERS Safety Report 21407129 (Version 1)
Quarter: 2022Q4

REPORT INFORMATION
  Report Type: Spontaneous
  Country: NL (occurrence: NL)
  Receive Date: 20221004
  Receipt Date: 20221004
  Transmission Date: 20230112
  Serious: Yes (Other)
  Sender: FDA-Public Use
  Company Number: None

PATIENT
  Age: 66 Year
  Sex: Male
  Weight: 96 kg

DRUGS (7)
  1. ISOSORBIDE MONONITRATE [Suspect]
     Active Substance: ISOSORBIDE MONONITRATE
     Indication: Vasoconstriction
     Dosage: 60 MG, 1 X DAILY AT 8.00 HOUR VIA THE BAXTERROL, STRENGTH 60 MG
     Dates: start: 20220708
  2. EZETIMIBE [Concomitant]
     Active Substance: EZETIMIBE
     Dosage: STRENGTH 10 MG
  3. ATORVASTATIN [Concomitant]
     Active Substance: ATORVASTATIN
     Dosage: STRENGTH 20 MG
  4. LOSARTAN [Concomitant]
     Active Substance: LOSARTAN
     Dosage: STRENGTH 50 MG, TABLET FO
  5. ASPIRIN [Concomitant]
     Active Substance: ASPIRIN
     Dosage: STRENGTH 80 MG
  6. NAPROXEN [Concomitant]
     Active Substance: NAPROXEN
     Dosage: STRENGTH 250 MG, 2 X DAILY
  7. ISOSORBIDE MONONITRATE [Suspect]
     Active Substance: ISOSORBIDE MONONITRATE
     Indication: Vasoconstriction
     Dosage: 1 X DAILY AT 8.00 HOUR, STRENGTH 60 MG

REACTIONS (3)
  - Deafness [Recovering/Resolving]
  - Tinnitus [Recovering/Resolving]
  - Vertigo [Recovering/Resolving]

NARRATIVE: CASE EVENT DATE: 20220715
